FAERS Safety Report 15512371 (Version 1)
Quarter: 2018Q4

REPORT INFORMATION
  Report Type: Spontaneous
  Country: US (occurrence: US)
  Receive Date: 20181017
  Receipt Date: 20181017
  Transmission Date: 20190205
  Serious: Yes (Other)
  Sender: FDA-Public Use
  Company Number: None

PATIENT
  Age: 73 Year
  Sex: Female
  Weight: 89.1 kg

DRUGS (2)
  1. MULTIPLE VITAMINS [Concomitant]
     Active Substance: VITAMINS
  2. OXYCODONE AND ACETAMINOPHEN [Suspect]
     Active Substance: ACETAMINOPHEN\OXYCODONE HYDROCHLORIDE
     Indication: ANALGESIC THERAPY
     Dosage: ?          QUANTITY:1 TABLET(S);?
     Route: 048
     Dates: start: 20181001

REACTIONS (5)
  - Feeling abnormal [None]
  - Diarrhoea [None]
  - Asthenia [None]
  - Dizziness [None]
  - Tinnitus [None]

NARRATIVE: CASE EVENT DATE: 20181002
